FAERS Safety Report 7124481-8 (Version None)
Quarter: 2010Q4

REPORT INFORMATION
  Report Type: 
  Country: None (occurrence: None)
  Receive Date: 20101128
  Receipt Date: 20101123
  Transmission Date: 20110411
  Serious: Yes (Other)
  Sender: FDA-Public Use
  Company Number: GB-ALLERGAN-1011500US

PATIENT
  Age: 53 Year
  Sex: Female
  Weight: 74.376 kg

DRUGS (3)
  1. BOTOXA? [Suspect]
     Indication: ANAL FISSURE
     Dosage: 0.1 ML, SINGLE
     Dates: start: 20100818, end: 20100818
  2. CHOLESTAGEL [Concomitant]
     Indication: PRODUCT USED FOR UNKNOWN INDICATION
     Dosage: 625 MG, QID
  3. RANITIDINE [Concomitant]
     Indication: GASTRIC PH DECREASED
     Dosage: 150 MG, QD

REACTIONS (9)
  - ARTHRITIS [None]
  - MUSCLE SPASMS [None]
  - MUSCULAR WEAKNESS [None]
  - NAUSEA [None]
  - OEDEMA PERIPHERAL [None]
  - PAIN [None]
  - PAIN IN EXTREMITY [None]
  - PARAESTHESIA [None]
  - VASODILATATION [None]
